FAERS Safety Report 7402774-4 (Version None)
Quarter: 2011Q2

REPORT INFORMATION
  Report Type: 
  Country: None (occurrence: None)
  Receive Date: 20110408
  Receipt Date: 20110325
  Transmission Date: 20111010
  Serious: Yes (Other)
  Sender: FDA-Public Use
  Company Number: PHHY2011US25285

PATIENT
  Sex: Female

DRUGS (22)
  1. CENTRUM SILVER [Concomitant]
  2. DIOVAN [Suspect]
     Dosage: 160 MG, QD
  3. FISH OIL [Concomitant]
  4. LIPITOR [Concomitant]
  5. HYDROCORTISONE [Concomitant]
  6. FLORINEF [Concomitant]
  7. PROZAC [Concomitant]
  8. ACETAMINOPHEN [Concomitant]
  9. PREDNISONE [Concomitant]
  10. NEXIUM [Concomitant]
  11. MAGNESIUM [Concomitant]
  12. VITAMIN B COMPLEX CAP [Concomitant]
     Dosage: 400 IU, UNK
  13. KLONOPIN [Concomitant]
  14. DIOVAN HCT [Suspect]
  15. RECLAST [Concomitant]
  16. CALICUM [Concomitant]
  17. VITAMIN D [Concomitant]
  18. TROPORL XR [Concomitant]
  19. VOVIRAX [Concomitant]
  20. PERCOCET [Concomitant]
  21. ALLEGRA [Concomitant]
  22. PRESAMINE [Concomitant]

REACTIONS (23)
  - LIP INJURY [None]
  - OSTEOARTHRITIS [None]
  - PRODUCTIVE COUGH [None]
  - PAIN [None]
  - VERTIGO [None]
  - JOINT SPRAIN [None]
  - BEDRIDDEN [None]
  - BONE DENSITY DECREASED [None]
  - DECREASED ACTIVITY [None]
  - GAIT DISTURBANCE [None]
  - WRONG DRUG ADMINISTERED [None]
  - VISION BLURRED [None]
  - DRY MOUTH [None]
  - NAUSEA [None]
  - FALL [None]
  - BALANCE DISORDER [None]
  - DIZZINESS [None]
  - CONTUSION [None]
  - CONCUSSION [None]
  - ABNORMAL BEHAVIOUR [None]
  - HERPES SIMPLEX [None]
  - SKELETAL INJURY [None]
  - FIBROMYALGIA [None]
